FAERS Safety Report 18902523 (Version 1)
Quarter: 2021Q1

REPORT INFORMATION
  Report Type: Spontaneous
  Country: US (occurrence: US)
  Receive Date: 20210216
  Receipt Date: 20210216
  Transmission Date: 20210420
  Serious: Yes (Hospitalization, Other)
  Sender: FDA-Public Use
  Company Number: US-BEXIMCO-2021BEX00008

PATIENT
  Age: 85 Year
  Sex: Female

DRUGS (13)
  1. FLECAINIDE ACETATE. [Suspect]
     Active Substance: FLECAINIDE ACETATE
     Dosage: 50 MG, 2X/DAY
     Dates: start: 202009, end: 202010
  2. NP THYROID [Suspect]
     Active Substance: LEVOTHYROXINE\LIOTHYRONINE
     Indication: HYPOTHYROIDISM
     Dosage: 90 MG, 1X/DAY
     Route: 048
     Dates: start: 202005, end: 202012
  3. XARELTO [Concomitant]
     Active Substance: RIVAROXABAN
  4. PROPAFENONE. [Concomitant]
     Active Substance: PROPAFENONE
     Dosage: 225 MG, 2X/DAY (EVERY 12 HOURS)
     Route: 048
     Dates: start: 202007, end: 20210117
  5. PROPAFENONE. [Concomitant]
     Active Substance: PROPAFENONE
     Dosage: 150 MG, 3X/DAY
     Route: 048
     Dates: start: 20210117
  6. UNSPECIFIED MEDICATION TO SLOW HER HEART RATE [Concomitant]
     Dosage: AT NIGHT
  7. METOPROLOL. [Suspect]
     Active Substance: METOPROLOL
     Dosage: UNK
     Dates: start: 202009, end: 202010
  8. NP THYROID [Suspect]
     Active Substance: LEVOTHYROXINE\LIOTHYRONINE
     Indication: HYPOTHYROIDISM
     Dosage: 15 MG, 1X/DAY
     Route: 048
     Dates: start: 202012
  9. NP THYROID [Suspect]
     Active Substance: LEVOTHYROXINE\LIOTHYRONINE
     Indication: HYPOTHYROIDISM
     Dosage: 120 MG, 1X/DAY
     Route: 048
     Dates: start: 202012
  10. POTASSIUM [Concomitant]
     Active Substance: POTASSIUM
  11. NP THYROID [Suspect]
     Active Substance: LEVOTHYROXINE\LIOTHYRONINE
     Indication: HYPOTHYROIDISM
     Dosage: UNK
     Dates: start: 2020
  12. HYDROCHLOROTHIAZIDE. [Concomitant]
     Active Substance: HYDROCHLOROTHIAZIDE
  13. NITROFURANTOIN. [Suspect]
     Active Substance: NITROFURANTOIN
     Dosage: UNK
     Dates: start: 202007, end: 202010

REACTIONS (7)
  - Fall [Recovered/Resolved]
  - Dizziness [Recovered/Resolved]
  - Hip fracture [Unknown]
  - Arrhythmia [Recovered/Resolved]
  - Malaise [Recovered/Resolved]
  - Nausea [Recovered/Resolved]
  - Feeling abnormal [Recovered/Resolved]

NARRATIVE: CASE EVENT DATE: 202009
